APPROVED DRUG PRODUCT: BACTROBAN
Active Ingredient: MUPIROCIN CALCIUM
Strength: EQ 2% BASE **Federal Register determination that product was not discontinued or withdrawn for safety or effectiveness reasons**
Dosage Form/Route: OINTMENT;NASAL
Application: N050703 | Product #001
Applicant: GLAXOSMITHKLINE
Approved: Sep 18, 1995 | RLD: Yes | RS: No | Type: DISCN